FAERS Safety Report 11616092 (Version 1)
Quarter: 2015Q4

REPORT INFORMATION
  Report Type: Spontaneous
  Country: US (occurrence: None)
  Receive Date: 20151008
  Receipt Date: 20151008
  Transmission Date: 20160304
  Serious: Yes (Hospitalization)
  Sender: FDA-Public Use
  Company Number: None

PATIENT
  Age: 64 Year
  Sex: Male

DRUGS (1)
  1. IBUPROFEN. [Suspect]
     Active Substance: IBUPROFEN
     Indication: PAIN
     Route: 048
     Dates: start: 20120618, end: 20150917

REACTIONS (11)
  - Large intestinal ulcer haemorrhage [None]
  - Dizziness [None]
  - Tachycardia [None]
  - Melaena [None]
  - Abdominal pain [None]
  - Defaecation urgency [None]
  - Anaemia [None]
  - Gastritis [None]
  - Presyncope [None]
  - Frequent bowel movements [None]
  - Nausea [None]

NARRATIVE: CASE EVENT DATE: 20150916
